FAERS Safety Report 7483875-1 (Version None)
Quarter: 2011Q2

REPORT INFORMATION
  Report Type: 
  Country: None (occurrence: None)
  Receive Date: 20110517
  Receipt Date: 20110506
  Transmission Date: 20111010
  Serious: Yes (Other)
  Sender: FDA-Public Use
  Company Number: PHHY2011CL39345

PATIENT
  Age: 77 Year
  Sex: Male

DRUGS (2)
  1. INSULIN [Concomitant]
     Dosage: UNK DOSE, TWICE DAILY
  2. VALSARTAN [Suspect]
     Dosage: 160 MG PER DAY
     Dates: end: 20110501

REACTIONS (3)
  - DIZZINESS [None]
  - COUGH [None]
  - BRONCHITIS [None]
